FAERS Safety Report 7472293-8 (Version None)
Quarter: 2011Q2

REPORT INFORMATION
  Report Type: 
  Country: None (occurrence: None)
  Receive Date: 20110511
  Receipt Date: 20110425
  Transmission Date: 20111010
  Serious: No
  Sender: FDA-Public Use
  Company Number: US-B.I. PHARMACEUTICALS,INC./RIDGEFIELD-2011-BP-11662BP

PATIENT
  Age: 78 Year
  Sex: Male

DRUGS (4)
  1. LIPITOR [Concomitant]
     Indication: BLOOD CHOLESTEROL INCREASED
     Dates: start: 20110101
  2. AGGRENOX [Suspect]
     Indication: TRANSIENT ISCHAEMIC ATTACK
     Route: 048
     Dates: start: 20070101, end: 20101001
  3. AGGRENOX [Suspect]
     Route: 048
     Dates: start: 20110101
  4. VOLTAREN [Concomitant]
     Indication: ARTHRITIS
     Dates: start: 20110201

REACTIONS (1)
  - ERUCTATION [None]
